FAERS Safety Report 25997388 (Version 1)
Quarter: 2025Q4

REPORT INFORMATION
  Report Type: Spontaneous
  Country: US (occurrence: US)
  Receive Date: 20251104
  Receipt Date: 20251104
  Transmission Date: 20260117
  Serious: No
  Sender: ABBVIE
  Company Number: US-ABBVIE-6522850

PATIENT
  Sex: Female

DRUGS (1)
  1. CYCLOSPORINE [Suspect]
     Active Substance: CYCLOSPORINE
     Indication: Glaucoma
     Dosage: STRENGTH 0.05 %, NDC: 10702-808-06, SERIAL NUMBER: 150407950968; OPHTHALMIC EMULSION
     Route: 047

REACTIONS (3)
  - Glaucoma [Unknown]
  - Product colour issue [Unknown]
  - Product packaging quantity issue [Unknown]

NARRATIVE: CASE EVENT DATE: 20251015
